FAERS Safety Report 4744740-3 (Version None)
Quarter: 2005Q3

REPORT INFORMATION
  Report Type: 
  Country: None (occurrence: None)
  Receive Date: 20050815
  Receipt Date: 20050524
  Transmission Date: 20060218
  Serious: Yes (Disabling)
  Sender: FDA-Public Use
  Company Number: FI-AMGEN-UK135518

PATIENT
  Sex: Female
  Weight: 51 kg

DRUGS (9)
  1. ARANESP [Suspect]
     Indication: RENAL FAILURE CHRONIC
     Route: 042
     Dates: start: 20030917, end: 20050525
  2. VENOFER [Concomitant]
     Route: 042
     Dates: start: 20040105
  3. ATARAX [Concomitant]
     Route: 048
     Dates: start: 20031229
  4. ETALPHA [Concomitant]
     Route: 048
     Dates: start: 20050108
  5. RENAGEL [Concomitant]
     Route: 048
     Dates: start: 20050310
  6. RESONIUM [Concomitant]
     Route: 048
     Dates: start: 20040128
  7. THYROXIN [Concomitant]
     Route: 048
  8. CALCIUM ACETATE [Concomitant]
     Route: 048
  9. VITAMIN B COMPLEX WITH C [Concomitant]
     Route: 048
     Dates: start: 20030508

REACTIONS (4)
  - ANAEMIA [None]
  - DERMATITIS [None]
  - DRUG INEFFECTIVE [None]
  - FOLLICULITIS [None]
